FAERS Safety Report 7251941-1 (Version None)
Quarter: 2011Q1

REPORT INFORMATION
  Report Type: 
  Country: None (occurrence: None)
  Receive Date: 20110128
  Receipt Date: 20100111
  Transmission Date: 20110831
  Serious: No
  Sender: FDA-Public Use
  Company Number: US-ABBOTT-10P-163-0618589-00

PATIENT
  Sex: Male

DRUGS (2)
  1. PREDNISONE [Concomitant]
     Indication: PRODUCT USED FOR UNKNOWN INDICATION
  2. HUMIRA [Suspect]
     Indication: CROHN'S DISEASE
     Dosage: DAY 15
     Dates: start: 20091217

REACTIONS (5)
  - HAEMATOCHEZIA [None]
  - BLOOD URINE PRESENT [None]
  - HEADACHE [None]
  - PAIN IN EXTREMITY [None]
  - PARAESTHESIA [None]
